FAERS Safety Report 11121390 (Version 1)
Quarter: 2015Q2

REPORT INFORMATION
  Report Type: Report from Study
  Country: CA (occurrence: CA)
  Receive Date: 20150519
  Receipt Date: 20150519
  Transmission Date: 20150821
  Serious: Yes (Disabling)
  Sender: FDA-Public Use
  Company Number: CA-ABBVIE-15K-028-1391950-00

PATIENT
  Sex: Female

DRUGS (1)
  1. HUMIRA [Suspect]
     Active Substance: ADALIMUMAB
     Indication: RHEUMATOID ARTHRITIS
     Route: 058
     Dates: start: 20130725

REACTIONS (3)
  - Mobility decreased [Not Recovered/Not Resolved]
  - Fat tissue decreased [Not Recovered/Not Resolved]
  - Injection site pain [Not Recovered/Not Resolved]
